FAERS Safety Report 9980820 (Version 1)
Quarter: 2014Q1

REPORT INFORMATION
  Report Type: Report from Study
  Country: CA (occurrence: CA)
  Receive Date: 20140307
  Receipt Date: 20140307
  Transmission Date: 20141002
  Serious: Yes (Other)
  Sender: FDA-Public Use
  Company Number: CA-JNJFOC-20140218515

PATIENT
  Age: 65 Year
  Sex: Female
  Weight: 63 kg

DRUGS (7)
  1. REMICADE [Suspect]
     Indication: RHEUMATOID ARTHRITIS
     Route: 042
     Dates: start: 20110310
  2. REMICADE [Suspect]
     Indication: RHEUMATOID ARTHRITIS
     Route: 042
     Dates: start: 20140102, end: 20140102
  3. ALENDRONATE [Concomitant]
     Route: 048
  4. PREMARIN [Concomitant]
     Route: 048
  5. TRAMACET [Concomitant]
     Route: 065
  6. CITALOPRAM HYDROBROMIDE [Concomitant]
     Route: 048
  7. TRAZODONE [Concomitant]
     Route: 065

REACTIONS (2)
  - Osteomyelitis [Recovering/Resolving]
  - Osteonecrosis of jaw [Recovering/Resolving]
